FAERS Safety Report 26143669 (Version 1)
Quarter: 2025Q4

REPORT INFORMATION
  Report Type: Spontaneous
  Country: US (occurrence: US)
  Receive Date: 20251211
  Receipt Date: 20251211
  Transmission Date: 20260118
  Serious: No
  Sender: ALVOGEN
  Company Number: US-ALVOGEN-2025098357

PATIENT
  Sex: Female

DRUGS (2)
  1. LEVOTHYROXINE SODIUM [Suspect]
     Active Substance: LEVOTHYROXINE SODIUM
     Indication: Hypothyroidism
     Dosage: HALF TABLET;?EXPIRATION DATE: JUL-2027?125 MCG TABLETS?S/N: 180978210134
     Dates: start: 202507, end: 202507
  2. LEVOTHYROXINE SODIUM [Suspect]
     Active Substance: LEVOTHYROXINE SODIUM
     Indication: Hypothyroidism
     Dosage: FULL TABLET FOR FEW DAYS;?EXPIRATION DATE: JUL-2027?125 MCG TABLETS?S/N: 180978210134
     Dates: start: 202507

REACTIONS (4)
  - Somnolence [Unknown]
  - Balance disorder [Unknown]
  - Clumsiness [Unknown]
  - Fatigue [Unknown]

NARRATIVE: CASE EVENT DATE: 20250701
